FAERS Safety Report 24325210 (Version 1)
Quarter: 2024Q3

REPORT INFORMATION
  Report Type: Spontaneous
  Country: TR (occurrence: TR)
  Receive Date: 20240916
  Receipt Date: 20240916
  Transmission Date: 20241016
  Serious: Yes (Hospitalization, Other)
  Sender: PURDUE
  Company Number: TR-NAPPMUNDI-GBR-2024-0119671

PATIENT
  Age: 6 Year
  Sex: Male

DRUGS (18)
  1. METHYLPHENIDATE HYDROCHLORIDE [Interacting]
     Active Substance: METHYLPHENIDATE HYDROCHLORIDE
     Indication: Attention deficit hyperactivity disorder
     Dosage: 10 MILLIGRAM, DAILY
     Route: 065
     Dates: start: 202205
  2. METHYLPHENIDATE HYDROCHLORIDE [Interacting]
     Active Substance: METHYLPHENIDATE HYDROCHLORIDE
     Indication: Social (pragmatic) communication disorder
     Dosage: 20 MILLIGRAM, DAILY
     Route: 065
     Dates: start: 202206
  3. METHYLPHENIDATE HYDROCHLORIDE [Interacting]
     Active Substance: METHYLPHENIDATE HYDROCHLORIDE
     Indication: Autism spectrum disorder
     Dosage: 20 MILLIGRAM, DAILY
     Route: 065
     Dates: start: 202305, end: 202310
  4. METHYLPHENIDATE HYDROCHLORIDE [Interacting]
     Active Substance: METHYLPHENIDATE HYDROCHLORIDE
     Dosage: 10 MILLIGRAM, DAILY
     Route: 065
     Dates: start: 202209, end: 202305
  5. METHYLPHENIDATE HYDROCHLORIDE [Interacting]
     Active Substance: METHYLPHENIDATE HYDROCHLORIDE
     Dosage: 10 MILLIGRAM, DAILY, IF NECESSARY IN THE AFTERNOON
     Route: 065
     Dates: start: 202305
  6. METHYLPHENIDATE HYDROCHLORIDE [Interacting]
     Active Substance: METHYLPHENIDATE HYDROCHLORIDE
     Dosage: 10 MILLIGRAM, DAILY, IF NECESSARY IN THE AFTERNOON
     Route: 065
     Dates: start: 202305, end: 202306
  7. METHYLPHENIDATE HYDROCHLORIDE [Interacting]
     Active Substance: METHYLPHENIDATE HYDROCHLORIDE
     Dosage: 20 MILLIGRAM, DAILY
     Route: 065
     Dates: start: 202306, end: 202309
  8. METHYLPHENIDATE HYDROCHLORIDE [Interacting]
     Active Substance: METHYLPHENIDATE HYDROCHLORIDE
     Dosage: 30 MILLIGRAM, DAILY, INCREASED
     Route: 065
     Dates: start: 202310
  9. METHYLPHENIDATE HYDROCHLORIDE [Interacting]
     Active Substance: METHYLPHENIDATE HYDROCHLORIDE
     Indication: Attention deficit hyperactivity disorder
     Dosage: 10 MILLIGRAM, DAILY
     Route: 065
     Dates: start: 202205
  10. METHYLPHENIDATE HYDROCHLORIDE [Interacting]
     Active Substance: METHYLPHENIDATE HYDROCHLORIDE
     Indication: Social (pragmatic) communication disorder
     Dosage: 20 MILLIGRAM, DAILY
     Route: 065
     Dates: start: 202206
  11. METHYLPHENIDATE HYDROCHLORIDE [Interacting]
     Active Substance: METHYLPHENIDATE HYDROCHLORIDE
     Indication: Autism spectrum disorder
     Dosage: 20 MILLIGRAM, DAILY
     Route: 065
     Dates: start: 202305, end: 202310
  12. METHYLPHENIDATE HYDROCHLORIDE [Interacting]
     Active Substance: METHYLPHENIDATE HYDROCHLORIDE
     Dosage: 10 MILLIGRAM, DAILY
     Route: 065
     Dates: start: 202209, end: 202305
  13. METHYLPHENIDATE HYDROCHLORIDE [Interacting]
     Active Substance: METHYLPHENIDATE HYDROCHLORIDE
     Dosage: 10 MILLIGRAM, DAILY IF NECESSARY IN THE AFTERNOON
     Route: 065
     Dates: start: 202305
  14. METHYLPHENIDATE HYDROCHLORIDE [Interacting]
     Active Substance: METHYLPHENIDATE HYDROCHLORIDE
     Dosage: 10 MILLIGRAM, DAILY IF NECESSARY IN THE AFTERNOON
     Route: 065
     Dates: start: 202305, end: 202306
  15. METHYLPHENIDATE HYDROCHLORIDE [Interacting]
     Active Substance: METHYLPHENIDATE HYDROCHLORIDE
     Dosage: 20 MILLIGRAM, DAILY
     Route: 065
     Dates: start: 202306, end: 202309
  16. METHYLPHENIDATE HYDROCHLORIDE [Interacting]
     Active Substance: METHYLPHENIDATE HYDROCHLORIDE
     Dosage: 30 MILLIGRAM, DAILY
     Route: 065
     Dates: start: 202310
  17. RISPERIDONE [Interacting]
     Active Substance: RISPERIDONE
     Indication: Attention deficit hyperactivity disorder
     Dosage: 0.25 MILLIGRAM, DAILY
     Route: 065
     Dates: start: 202112
  18. RISPERIDONE [Interacting]
     Active Substance: RISPERIDONE
     Dosage: 0.5 MILLIGRAM, DAILY
     Route: 065
     Dates: start: 202208

REACTIONS (4)
  - Dystonia [Recovered/Resolved]
  - Withdrawal syndrome [Recovered/Resolved]
  - Drug interaction [Unknown]
  - Inappropriate schedule of product discontinuation [Unknown]

NARRATIVE: CASE EVENT DATE: 20230101
